FAERS Safety Report 7565194-8 (Version None)
Quarter: 2011Q2

REPORT INFORMATION
  Report Type: 
  Country: None (occurrence: None)
  Receive Date: 20110622
  Receipt Date: 20081017
  Transmission Date: 20111010
  Serious: Yes (Other)
  Sender: FDA-Public Use
  Company Number: PHHY2008DE37542

PATIENT
  Sex: Female
  Weight: 52 kg

DRUGS (3)
  1. SANDOSTATIN LAR [Suspect]
     Indication: DIARRHOEA
     Dosage: 20 MG, UNK
     Route: 030
     Dates: start: 20070801
  2. SANDOSTATIN LAR [Suspect]
     Dosage: 20 MG, UNK
     Route: 058
  3. SANDOSTATIN LAR [Suspect]
     Dosage: 30 MG, UNK
     Route: 058

REACTIONS (12)
  - CARDIOVASCULAR DISORDER [None]
  - ABDOMINAL DISCOMFORT [None]
  - PALPITATIONS [None]
  - MUSCLE TIGHTNESS [None]
  - PARAESTHESIA [None]
  - DIZZINESS [None]
  - TACHYCARDIA [None]
  - LETHARGY [None]
  - FATIGUE [None]
  - BODY TEMPERATURE INCREASED [None]
  - CHILLS [None]
  - NAUSEA [None]
